FAERS Safety Report 5430329-X (Version None)
Quarter: 2007Q3

REPORT INFORMATION
  Report Type: 
  Country: None (occurrence: None)
  Receive Date: 20070830
  Receipt Date: 20070822
  Transmission Date: 20080115
  Serious: Yes (Hospitalization, Other)
  Sender: FDA-Public Use
  Company Number: PHBS2007JP12131

PATIENT
  Age: 44 Year
  Sex: Female

DRUGS (3)
  1. DIOVAN [Suspect]
     Dosage: 80 MG, UNK
  2. HYGROTON [Suspect]
     Indication: FLUID RETENTION
     Dosage: 12.5 MG, UNK
     Dates: start: 20040101
  3. JAPANESE MEDICINE [Concomitant]

REACTIONS (7)
  - BURNING SENSATION [None]
  - FLUID RETENTION [None]
  - HYPERTENSION [None]
  - NEPHROLITHIASIS [None]
  - RENAL COLIC [None]
  - RENAL PAIN [None]
  - SWELLING [None]
